FAERS Safety Report 20722656 (Version 1)
Quarter: 2022Q2

REPORT INFORMATION
  Report Type: Spontaneous
  Country: FR (occurrence: FR)
  Receive Date: 20220419
  Receipt Date: 20220419
  Transmission Date: 20220721
  Serious: Yes (Hospitalization)
  Sender: FDA-Public Use
  Company Number: None

PATIENT
  Age: 36 Year
  Sex: Male

DRUGS (1)
  1. SKYRIZI [Suspect]
     Active Substance: RISANKIZUMAB-RZAA
     Indication: Erythrodermic psoriasis
     Route: 058
     Dates: start: 20220311, end: 20220311

REACTIONS (2)
  - Papilloedema [Recovering/Resolving]
  - Malignant hypertension [Recovering/Resolving]

NARRATIVE: CASE EVENT DATE: 20220328
